FAERS Safety Report 6028688-2 (Version None)
Quarter: 2009Q1

REPORT INFORMATION
  Report Type: 
  Country: None (occurrence: None)
  Receive Date: 20090106
  Receipt Date: 20081223
  Transmission Date: 20090719
  Serious: Yes (Hospitalization, Other)
  Sender: FDA-Public Use
  Company Number: UY-ROCHE-595385

PATIENT
  Sex: Male
  Weight: 72 kg

DRUGS (7)
  1. METHOXY POLYETHYLENE GLYCOL-EPOETIN BETA [Suspect]
     Dosage: FORM: VIAL
     Route: 058
     Dates: start: 20080131
  2. EPOETIN NOS [Concomitant]
     Dosage: EPOETIN ALFA ADMINISTERED IN THE WEEK PRECEDING FIRST STUDY DRUG ADMINISTERATION.
  3. AMIODARONA [Concomitant]
     Dates: start: 20070101
  4. RANITIDINA [Concomitant]
     Dates: start: 20051101
  5. PIRIDOXINA [Concomitant]
     Dosage: DRUG NAME REPORTED AS PIRIDOXIN
     Dates: start: 20051101
  6. ACIDO ASCORBICO [Concomitant]
     Dates: start: 20051101
  7. CARBONATO DE CALCIO [Concomitant]
     Dates: start: 20060601

REACTIONS (6)
  - BLOOD POTASSIUM INCREASED [None]
  - CARCINOEMBRYONIC ANTIGEN INCREASED [None]
  - DIVERTICULUM INTESTINAL [None]
  - HAEMOGLOBIN DECREASED [None]
  - OCCULT BLOOD POSITIVE [None]
  - THROMBOSIS [None]
